FAERS Safety Report 16051952 (Version 1)
Quarter: 2019Q1

REPORT INFORMATION
  Report Type: Spontaneous
  Country: GB (occurrence: GB)
  Receive Date: 20190308
  Receipt Date: 20190308
  Transmission Date: 20190418
  Serious: Yes (Hospitalization, Disabling)
  Sender: FDA-Public Use
  Company Number: GB-ASTRAZENECA-2019SE35594

PATIENT
  Age: 56 Year
  Sex: Male

DRUGS (13)
  1. QUININE SULFATE. [Concomitant]
     Active Substance: QUININE SULFATE
  2. ALLOPURINOL. [Concomitant]
     Active Substance: ALLOPURINOL
  3. CLOPIDOGREL [Concomitant]
     Active Substance: CLOPIDOGREL BISULFATE
  4. LIRAGLUTIDE [Concomitant]
     Active Substance: LIRAGLUTIDE
  5. AMLODIPINE [Concomitant]
     Active Substance: AMLODIPINE BESYLATE
  6. FENOFIBRATE. [Concomitant]
     Active Substance: FENOFIBRATE
  7. DAPAGLIFLOZIN. [Suspect]
     Active Substance: DAPAGLIFLOZIN
     Indication: DIABETES MELLITUS
     Dosage: 10 MG, EVERY MORNING
     Route: 048
     Dates: end: 20190208
  8. NOVOMIX [Concomitant]
     Active Substance: INSULIN ASPART
  9. RAMIPRIL. [Concomitant]
     Active Substance: RAMIPRIL
  10. MIRTAZAPINE. [Concomitant]
     Active Substance: MIRTAZAPINE
  11. INDAPAMIDE. [Concomitant]
     Active Substance: INDAPAMIDE
  12. GABAPENTIN. [Concomitant]
     Active Substance: GABAPENTIN
  13. METFORMIN [Concomitant]
     Active Substance: METFORMIN HYDROCHLORIDE

REACTIONS (1)
  - Foot amputation [Recovered/Resolved]

NARRATIVE: CASE EVENT DATE: 20190212
